FAERS Safety Report 8616030-X (Version None)
Quarter: 2012Q3

REPORT INFORMATION
  Report Type: 
  Country: None (occurrence: None)
  Receive Date: 20120823
  Receipt Date: 20120817
  Transmission Date: 20120928
  Serious: No
  Sender: FDA-Public Use
  Company Number: US-PFIZER INC-2012186525

PATIENT
  Age: 86 Year
  Sex: Male

DRUGS (4)
  1. CARDURA [Concomitant]
     Dosage: 4 MG, UNK
  2. ATENOLOL [Concomitant]
     Indication: CORONARY ARTERY DISEASE
     Dosage: 25 MG, UNK
  3. CARDIZEM CD [Concomitant]
     Indication: CORONARY ARTERY DISEASE
     Dosage: 120 MG, UNK
  4. SUTENT [Suspect]
     Indication: RENAL CANCER
     Dosage: 50 MG, 1X/DAY, FOR 3 WEEKS
     Route: 048
     Dates: start: 20120701, end: 20120721

REACTIONS (4)
  - GENERAL PHYSICAL HEALTH DETERIORATION [None]
  - VOMITING [None]
  - NAUSEA [None]
  - ASTHENIA [None]
